FAERS Safety Report 15989589 (Version 2)
Quarter: 2019Q1

REPORT INFORMATION
  Report Type: Spontaneous
  Country: US (occurrence: US)
  Receive Date: 20190221
  Receipt Date: 20190325
  Transmission Date: 20190418
  Serious: No
  Sender: FDA-Public Use
  Company Number: US-PFIZER INC-2019068927

PATIENT
  Age: 58 Year
  Sex: Male
  Weight: 86.18 kg

DRUGS (2)
  1. LYRICA [Suspect]
     Active Substance: PREGABALIN
     Indication: JOINT SWELLING
     Dosage: 50 MG, 2X/DAY
     Route: 048
  2. COUMADIN [Concomitant]
     Active Substance: WARFARIN SODIUM
     Indication: PULMONARY EMBOLISM
     Dosage: UNK UNK, DAILY (TAKES VARIED COMBINATIONS OF 1MG, 2.5MG, AND 3MG TABLETS)
     Route: 048

REACTIONS (5)
  - International normalised ratio decreased [Unknown]
  - Product dose omission [Unknown]
  - Product use in unapproved indication [Unknown]
  - Gait disturbance [Unknown]
  - Peripheral swelling [Recovering/Resolving]
